FAERS Safety Report 9123114 (Version 2)
Quarter: 2013Q1

REPORT INFORMATION
  Report Type: Report from Study
  Country: US (occurrence: US)
  Receive Date: 20130227
  Receipt Date: 20130322
  Transmission Date: 20140127
  Serious: Yes (Other)
  Sender: FDA-Public Use
  Company Number: US-JNJFOC-20130209087

PATIENT
  Age: 20 None
  Sex: Female

DRUGS (6)
  1. INVEGA SUSTENNA [Suspect]
     Indication: SCHIZOPHRENIA
     Route: 030
  2. INVEGA SUSTENNA [Suspect]
     Indication: SCHIZOPHRENIA
     Route: 030
     Dates: start: 201110
  3. INVEGA [Suspect]
     Indication: PRODUCT USED FOR UNKNOWN INDICATION
     Route: 048
     Dates: start: 201301
  4. VYVANSE [Concomitant]
     Indication: ATTENTION DEFICIT/HYPERACTIVITY DISORDER
     Dosage: STARTED ONE YEAR AGO
     Route: 065
  5. MIRALAX [Concomitant]
     Indication: CONSTIPATION
     Dosage: FROM PAST 5 YEARS AND ABOVE
     Route: 065
  6. VITAMIN B6 [Concomitant]
     Dosage: CHEWABLE, STARTED ONE YEAR AGO
     Route: 048

REACTIONS (5)
  - Attention deficit/hyperactivity disorder [Recovering/Resolving]
  - Mania [Recovered/Resolved]
  - Musculoskeletal stiffness [Recovering/Resolving]
  - Drug dose omission [Recovering/Resolving]
  - Drug effect decreased [Recovering/Resolving]
